FAERS Safety Report 6248563-8 (Version None)
Quarter: 2009Q2

REPORT INFORMATION
  Report Type: 
  Country: None (occurrence: None)
  Receive Date: 20090624
  Receipt Date: 20090624
  Transmission Date: 20091009
  Serious: Yes (Life-Threatening)
  Sender: FDA-Public Use
  Company Number: None

PATIENT
  Age: 49 Year
  Sex: Male
  Weight: 126 kg

DRUGS (7)
  1. LEPIRUDIN [Suspect]
     Indication: PROPHYLAXIS
     Dosage: 0.002 MG/KG/HR IV
     Route: 042
     Dates: start: 20090324, end: 20090417
  2. LANSOPRAZOLE [Concomitant]
  3. NEPHROCAP [Concomitant]
  4. INSULIN [Concomitant]
  5. FOLIC ACID [Concomitant]
  6. MIDODRINE [Concomitant]
  7. ALBUTEROL [Concomitant]

REACTIONS (5)
  - ACTIVATED PARTIAL THROMBOPLASTIN TIME PROLONGED [None]
  - CATHETER SITE HAEMORRHAGE [None]
  - HAEMODIALYSIS [None]
  - HAEMOGLOBIN DECREASED [None]
  - RENAL FAILURE CHRONIC [None]
